FAERS Safety Report 8338471-0 (Version None)
Quarter: 2012Q2

REPORT INFORMATION
  Report Type: 
  Country: None (occurrence: None)
  Receive Date: 20120504
  Receipt Date: 20120424
  Transmission Date: 20120825
  Serious: Yes (Death, Life-Threatening, Hospitalization)
  Sender: FDA-Public Use
  Company Number: AU-CELGENEUS-008-50794-12010343

PATIENT
  Sex: Female
  Weight: 55 kg

DRUGS (5)
  1. VIDAZA [Suspect]
     Dosage: 100 MILLIGRAM
     Route: 058
     Dates: start: 20100809, end: 20111228
  2. THIOGUANINE [Concomitant]
     Dosage: 80 MILLIGRAM
     Route: 065
  3. VALTREX [Concomitant]
     Dosage: 500 MILLIGRAM
     Route: 065
  4. FILGRASTIM [Concomitant]
     Indication: PROPHYLAXIS
     Dosage: 300 MILLIGRAM
     Route: 058
  5. POSACONAZOLE [Concomitant]
     Dosage: 600 MILLIGRAM
     Route: 065

REACTIONS (7)
  - INTERSTITIAL LUNG DISEASE [None]
  - ACTIVATED PARTIAL THROMBOPLASTIN TIME PROLONGED [None]
  - ORGANISING PNEUMONIA [None]
  - INFECTION [None]
  - SUDDEN DEATH [None]
  - HAEMORRHAGE [None]
  - PULMONARY EMBOLISM [None]
